FAERS Safety Report 14909341 (Version 4)
Quarter: 2018Q2

REPORT INFORMATION
  Report Type: Spontaneous
  Country: FR (occurrence: FR)
  Receive Date: 20180517
  Receipt Date: 20180626
  Transmission Date: 20180711
  Serious: Yes (Hospitalization)
  Sender: FDA-Public Use
  Company Number: FR-CELGENEUS-FRA-20180505007

PATIENT
  Age: 82 Year
  Sex: Female
  Weight: 53 kg

DRUGS (35)
  1. AMOXICILLIN. [Concomitant]
     Active Substance: AMOXICILLIN
     Indication: INFECTION PROPHYLAXIS
     Dosage: 1000 MILLIGRAM
     Route: 048
     Dates: start: 20160127
  2. SPASFON [Concomitant]
     Indication: ABDOMINAL PAIN
     Route: 048
     Dates: start: 20160502
  3. ZOLEDRONIC ACID [Concomitant]
     Active Substance: ZOLEDRONIC ACID
     Indication: OSTEOPOROSIS PROPHYLAXIS
     Dosage: 4 MILLIGRAM
     Route: 041
     Dates: start: 20151224
  4. COLPOTROPHINE [Concomitant]
     Active Substance: PROMESTRIENE
     Indication: VAGINAL PESSARY INSERTION
     Dosage: 30 MILLIGRAM
     Route: 048
     Dates: start: 20171220
  5. MIANSERINE [Concomitant]
     Active Substance: MIANSERIN HYDROCHLORIDE
     Indication: DEPRESSION
     Dosage: 15 MILLIGRAM
     Route: 048
     Dates: start: 20180214
  6. FORLAX [Concomitant]
     Active Substance: POLYETHYLENE GLYCOL 4000
     Indication: CONSTIPATION PROPHYLAXIS
     Route: 048
     Dates: start: 20160113
  7. BACTRIM [Concomitant]
     Active Substance: SULFAMETHOXAZOLE\TRIMETHOPRIM
     Indication: INFECTION PROPHYLAXIS
     Dosage: 1 DOSAGE FORMS
     Route: 048
     Dates: start: 20160209
  8. TIORFAN [Concomitant]
     Active Substance: RACECADOTRIL
     Indication: DIARRHOEA
     Dosage: 25 MILLIGRAM
     Route: 048
     Dates: start: 20160712
  9. MIANSERINE [Concomitant]
     Active Substance: MIANSERIN HYDROCHLORIDE
     Dosage: 30 MILLIGRAM
     Route: 048
     Dates: start: 20180314
  10. XANAX [Concomitant]
     Active Substance: ALPRAZOLAM
     Indication: DEPRESSION
     Dosage: 1 GRAM
     Route: 048
     Dates: start: 20160113
  11. VACICLOVIR [Concomitant]
     Indication: INFECTION PROPHYLAXIS
     Dosage: 1000 MILLIGRAM
     Route: 048
     Dates: start: 20160127
  12. DIPROSONE [Concomitant]
     Active Substance: BETAMETHASONE DIPROPIONATE
     Indication: DRUG HYPERSENSITIVITY
     Route: 061
     Dates: start: 20160219
  13. LEDERFOLINE [Concomitant]
     Active Substance: LEUCOVORIN CALCIUM
     Indication: ANAEMIA
     Dosage: 25 MILLIGRAM
     Route: 048
     Dates: start: 20160628
  14. OXYNORM [Concomitant]
     Active Substance: OXYCODONE HYDROCHLORIDE
     Indication: BACK PAIN
     Route: 048
     Dates: start: 20161117
  15. INNOHEP [Concomitant]
     Active Substance: TINZAPARIN SODIUM
     Indication: PULMONARY EMBOLISM
     Dosage: 9000 IU (INTERNATIONAL UNIT)
     Route: 058
     Dates: start: 20170821
  16. OMEPRAZOLE. [Concomitant]
     Active Substance: OMEPRAZOLE
     Indication: GASTROOESOPHAGEAL REFLUX DISEASE
     Dosage: 20 MILLIGRAM
     Route: 048
     Dates: start: 20171025
  17. DARATUMUMAB [Concomitant]
     Active Substance: DARATUMUMAB
     Indication: PLASMA CELL MYELOMA
     Dosage: 900 MILLIGRAM
     Route: 041
     Dates: start: 20160208
  18. AZARGA [Concomitant]
     Active Substance: BRINZOLAMIDE\TIMOLOL MALEATE
     Indication: OCULAR HYPERTENSION
     Dosage: 1 DROPS
     Route: 047
     Dates: start: 20160212
  19. DOLIPRANE [Concomitant]
     Active Substance: ACETAMINOPHEN
     Indication: MUSCLE CONTRACTURE
     Dosage: 3 GRAM
     Route: 048
     Dates: start: 20160614
  20. EFFERALGAN [Concomitant]
     Active Substance: ACETAMINOPHEN
     Indication: PAIN PROPHYLAXIS
     Dosage: 4 GRAM
     Route: 048
     Dates: start: 20160113
  21. TAHOR [Concomitant]
     Active Substance: ATORVASTATIN CALCIUM
     Indication: HYPERCHOLESTEROLAEMIA
     Dosage: 20 MILLIGRAM
     Route: 048
     Dates: start: 20161012
  22. DOSTINEX [Concomitant]
     Active Substance: CABERGOLINE
     Indication: PITUITARY TUMOUR BENIGN
     Route: 048
     Dates: start: 2000
  23. LOPERAMIDE [Concomitant]
     Active Substance: LOPERAMIDE
     Indication: DIARRHOEA
     Dosage: 6 CAPSULE
     Route: 048
     Dates: start: 20170504
  24. OXYCONTIN [Concomitant]
     Active Substance: OXYCODONE HYDROCHLORIDE
     Indication: BACK PAIN
     Dosage: 10 MILLIGRAM
     Route: 048
     Dates: start: 20180220
  25. REVLIMID [Suspect]
     Active Substance: LENALIDOMIDE
     Indication: PLASMA CELL MYELOMA
     Dosage: 25 MILLIGRAM
     Route: 048
     Dates: start: 20160208
  26. GLYCEROL\PARAFFIN [Concomitant]
     Active Substance: GLYCERIN\PARAFFIN
     Indication: DRUG HYPERSENSITIVITY
     Route: 061
     Dates: start: 20160219
  27. ATARAX [Concomitant]
     Active Substance: HYDROXYZINE HYDROCHLORIDE
     Indication: DRUG HYPERSENSITIVITY
     Dosage: 25 MILLIGRAM
     Route: 048
     Dates: start: 20160219
  28. MOTILIUM [Concomitant]
     Active Substance: DOMPERIDONE
     Indication: NAUSEA
     Route: 048
     Dates: start: 20160502
  29. ALPRAZOLAM. [Concomitant]
     Active Substance: ALPRAZOLAM
     Indication: DEPRESSION
     Dosage: 100 MILLIGRAM
     Route: 051
     Dates: start: 20160127
  30. CETIRIZINE [Concomitant]
     Active Substance: CETIRIZINE HYDROCHLORIDE
     Indication: OCULAR HYPERTENSION
     Dosage: 1 DOSAGE FORMS
     Route: 048
     Dates: start: 20160219
  31. FOLINORAL [Concomitant]
     Active Substance: LEUCOVORIN CALCIUM
     Indication: ANAEMIA PROPHYLAXIS
     Dosage: 1 TABLET
     Route: 048
     Dates: start: 20160209
  32. DEXAMETHASONE ORAL [Suspect]
     Active Substance: DEXAMETHASONE
     Indication: PLASMA CELL MYELOMA
     Dosage: 20 MILLIGRAM
     Route: 048
     Dates: start: 20160208
  33. TOPALGIC [Concomitant]
     Indication: PAIN PROPHYLAXIS
     Dosage: 200 MILLIGRAM
     Route: 048
     Dates: start: 20151224
  34. FORLAX [Concomitant]
     Active Substance: POLYETHYLENE GLYCOL 4000
     Route: 048
     Dates: start: 20160307
  35. MONOPROST [Concomitant]
     Active Substance: LATANOPROST
     Indication: OCULAR HYPERTENSION
     Dosage: 1 DROPS
     Route: 047
     Dates: start: 20160212

REACTIONS (1)
  - Genital prolapse [Not Recovered/Not Resolved]

NARRATIVE: CASE EVENT DATE: 20180401
